FAERS Safety Report 5234486-X (Version None)
Quarter: 2007Q1

REPORT INFORMATION
  Report Type: 
  Country: None (occurrence: None)
  Receive Date: 20070208
  Receipt Date: 20070208
  Transmission Date: 20070707
  Serious: Yes (Hospitalization)
  Sender: FDA-Public Use
  Company Number: None

PATIENT
  Age: 74 Year
  Sex: Male

DRUGS (14)
  1. WARFARIN SODIUM [Suspect]
     Indication: ATRIAL FIBRILLATION
     Dosage: 5 MG DAILY EXCEPT 7.5 MWF
     Dates: start: 20061113, end: 20061218
  2. WARFARIN SODIUM [Suspect]
     Indication: CEREBROVASCULAR ACCIDENT
     Dosage: 5 MG DAILY EXCEPT 7.5 MWF
     Dates: start: 20061113, end: 20061218
  3. ASPIRIN [Concomitant]
  4. BUPROPION HCL [Concomitant]
  5. BUSPIRONE HCL [Concomitant]
  6. CARVEDILOL [Concomitant]
  7. FOSINOPRIL SODIUM [Concomitant]
  8. GABAPENTIN [Concomitant]
  9. INSULIN NPH/LISPRO [Concomitant]
  10. LANTUS [Concomitant]
  11. LEVOTHYROXINE SODIUM [Concomitant]
  12. SIMVASTATIN [Concomitant]
  13. TRAZODONE HCL [Concomitant]
  14. COUMADIN [Concomitant]

REACTIONS (2)
  - INTERNATIONAL NORMALISED RATIO INCREASED [None]
  - LOWER GASTROINTESTINAL HAEMORRHAGE [None]
